FAERS Safety Report 16715031 (Version 1)
Quarter: 2019Q3

REPORT INFORMATION
  Report Type: Report from Study
  Country: GT (occurrence: GT)
  Receive Date: 20190819
  Receipt Date: 20190819
  Transmission Date: 20191005
  Serious: Yes (Disabling)
  Sender: FDA-Public Use
  Company Number: GT-SA-2019SA225111

PATIENT
  Age: 75 Year
  Sex: Female

DRUGS (1)
  1. HYDROCHLOROTHIAZIDE/IRBESARTAN [Suspect]
     Active Substance: HYDROCHLOROTHIAZIDE\IRBESARTAN
     Indication: HYPERTENSION
     Dosage: 1 DF, QD(1 ORAL TABLET OF 300MG IRBESARTAN + 25MG HYDROCHLOROTHIAZIDE, EVERY 24 HOURS)
     Route: 048
     Dates: start: 201902

REACTIONS (2)
  - Walking disability [Not Recovered/Not Resolved]
  - Immobile [Not Recovered/Not Resolved]
